FAERS Safety Report 9217974 (Version 2)
Quarter: 2013Q2

REPORT INFORMATION
  Report Type: Report from Study
  Country: AU (occurrence: AU)
  Receive Date: 20130408
  Receipt Date: 20130418
  Transmission Date: 20140414
  Serious: Yes (Hospitalization)
  Sender: FDA-Public Use
  Company Number: AU-JNJFOC-20130401874

PATIENT
  Age: 75 Year
  Sex: Male

DRUGS (14)
  1. STELARA [Suspect]
     Indication: PSORIASIS
     Dosage: 10TH INJECTION
     Route: 058
     Dates: start: 20110112
  2. STELARA [Suspect]
     Indication: PSORIASIS
     Route: 058
     Dates: start: 20130123
  3. COLGOUT [Concomitant]
  4. PROGOUT [Concomitant]
  5. LIPITOR [Concomitant]
  6. ANGININE [Concomitant]
  7. VITAMIN D [Concomitant]
  8. PANADEINE FORTE [Concomitant]
  9. PANADOL OSTEO [Concomitant]
  10. OMEPRAZOLE [Concomitant]
  11. SICAL [Concomitant]
  12. ASPIRIN [Concomitant]
  13. TEMAZE [Concomitant]
  14. VITAMIN E (TOCOPHERYL ACETATE) [Concomitant]

REACTIONS (1)
  - Thrombosis [Recovering/Resolving]
